FAERS Safety Report 7106954-7 (Version None)
Quarter: 2010Q4

REPORT INFORMATION
  Report Type: 
  Country: None (occurrence: None)
  Receive Date: 20101116
  Receipt Date: 20100830
  Transmission Date: 20110411
  Serious: No
  Sender: FDA-Public Use
  Company Number: US-ABBOTT-10P-163-0668379-00

PATIENT
  Sex: Female
  Weight: 62.652 kg

DRUGS (2)
  1. SIMCOR [Suspect]
     Indication: BLOOD CHOLESTEROL ABNORMAL
     Dosage: 500/20 MG DAILY
     Dates: start: 20100826, end: 20100830
  2. KLONOPIN [Concomitant]
     Indication: DEPRESSION

REACTIONS (5)
  - EYE SWELLING [None]
  - FLUSHING [None]
  - GENERALISED ERYTHEMA [None]
  - LIP SWELLING [None]
  - PARAESTHESIA [None]
